FAERS Safety Report 10084538 (Version 2)
Quarter: 2014Q2

REPORT INFORMATION
  Report Type: Spontaneous
  Country: JP (occurrence: JP)
  Receive Date: 20140417
  Receipt Date: 20140428
  Transmission Date: 20141212
  Serious: Yes (Hospitalization)
  Sender: FDA-Public Use
  Company Number: JP-DSJP-DSJ-2014-104849AA

PATIENT
  Sex: 0

DRUGS (1)
  1. OLMETEC [Suspect]
     Indication: HYPERTENSION
     Dosage: 20MG/DAY
     Route: 048
     Dates: start: 20140411, end: 20140413

REACTIONS (1)
  - Duodenal ulcer [Recovered/Resolved]
